FAERS Safety Report 17194901 (Version 2)
Quarter: 2020Q1

REPORT INFORMATION
  Report Type: Report from Study
  Country: None (occurrence: CH)
  Receive Date: 20191224
  Receipt Date: 20200115
  Transmission Date: 20200409
  Serious: Yes (Hospitalization)
  Sender: FDA-Public Use
  Company Number: CH-ABBVIE-19P-151-3202586-00

PATIENT
  Age: 80 Year
  Sex: Female

DRUGS (3)
  1. DUODOPA [Suspect]
     Active Substance: CARBIDOPA\LEVODOPA
     Dosage: MD:6.0 ML, CRD: 2.8 ML/H, CRN: 0.0 ML/H?EXTRA DOSE: 3.0 ML/H 16 H THERAPY
     Route: 050
     Dates: start: 20190726, end: 20191126
  2. DUODOPA [Suspect]
     Active Substance: CARBIDOPA\LEVODOPA
     Indication: PARKINSON^S DISEASE
     Route: 050
     Dates: start: 20180126, end: 20190726
  3. DUODOPA [Suspect]
     Active Substance: CARBIDOPA\LEVODOPA
     Dosage: MD :6.0 ML, CRD: 2.8 ML/H, CRN: 0.0 ML/H?EXTRA DOSE: 3.0 ML/H, 16 H THERAPY
     Route: 050
     Dates: start: 20191126

REACTIONS (1)
  - Femoral neck fracture [Recovering/Resolving]

NARRATIVE: CASE EVENT DATE: 201911
